FAERS Safety Report 6682241-6 (Version None)
Quarter: 2010Q2

REPORT INFORMATION
  Report Type: 
  Country: None (occurrence: None)
  Receive Date: 20100415
  Receipt Date: 20100406
  Transmission Date: 20101027
  Serious: No
  Sender: FDA-Public Use
  Company Number: 2009BI012412

PATIENT
  Sex: Female

DRUGS (1)
  1. TYSABRI [Suspect]
     Indication: MULTIPLE SCLEROSIS
     Route: 042
     Dates: start: 20080318

REACTIONS (15)
  - BALANCE DISORDER [None]
  - CONJUNCTIVITIS INFECTIVE [None]
  - FALSE POSITIVE LABORATORY RESULT [None]
  - FATIGUE [None]
  - MULTIPLE SCLEROSIS [None]
  - MULTIPLE SCLEROSIS RELAPSE [None]
  - ORAL CANDIDIASIS [None]
  - PARAESTHESIA [None]
  - POOR QUALITY SLEEP [None]
  - PULMONARY CONGESTION [None]
  - RASH GENERALISED [None]
  - RASH MACULAR [None]
  - SENSORY LOSS [None]
  - SIALOADENITIS [None]
  - URTICARIA [None]
